FAERS Safety Report 7000200-0 (Version None)
Quarter: 2010Q3

REPORT INFORMATION
  Report Type: 
  Country: None (occurrence: None)
  Receive Date: 20100920
  Receipt Date: 20100908
  Transmission Date: 20110219
  Serious: Yes (Other)
  Sender: FDA-Public Use
  Company Number: TH-PAR PHARMACEUTICAL, INC-2010SCPR002033

PATIENT

DRUGS (3)
  1. IBUPROFEN [Suspect]
     Indication: TENSION HEADACHE
     Dosage: 200 MG, UNKNOWN
     Route: 048
  2. IBUPROFEN [Suspect]
     Dosage: 100 MG, UNKNOWN
     Route: 048
  3. IBUPROFEN [Suspect]
     Dosage: 200 MG, UNKNOWN

REACTIONS (2)
  - PERIORBITAL OEDEMA [None]
  - PRURITUS [None]
